FAERS Safety Report 16927213 (Version 2)
Quarter: 2019Q4

REPORT INFORMATION
  Report Type: Report from Study
  Country: DE (occurrence: DE)
  Receive Date: 20191016
  Receipt Date: 20191111
  Transmission Date: 20200122
  Serious: Yes (Death, Hospitalization)
  Sender: FDA-Public Use
  Company Number: PHHY2018DE068802

PATIENT
  Age: 66 Year
  Sex: Female
  Weight: 49 kg

DRUGS (8)
  1. DEFERASIROX. [Suspect]
     Active Substance: DEFERASIROX
     Dosage: 360 MG, BID (11 MG/KG BODY WEIGHT/DAY= 1 TABLET 180MG 2 TABLETS 360MG)
     Route: 065
     Dates: start: 20170701, end: 20170925
  2. DEFERASIROX. [Suspect]
     Active Substance: DEFERASIROX
     Indication: MYELODYSPLASTIC SYNDROME
     Route: 065
  3. LOPERAMIDE [Concomitant]
     Active Substance: LOPERAMIDE
     Indication: DIARRHOEA
     Dosage: UPTO 8/DAY AS NEEDED
     Route: 065
  4. TILIDIN [Concomitant]
     Active Substance: NALOXONE HYDROCHLORIDE\TILIDINE HYDROCHLORIDE
     Indication: ARTHRALGIA
     Dosage: 200 MG, BID
     Route: 065
     Dates: start: 20190521, end: 20190702
  5. VERGENTAN [Concomitant]
     Active Substance: ALIZAPRIDE HYDROCHLORIDE
     Indication: NAUSEA
     Dosage: 3 DF, QD
     Route: 065
     Dates: start: 20170502
  6. AZACITIDINE. [Concomitant]
     Active Substance: AZACITIDINE
     Indication: MYELODYSPLASTIC SYNDROME
     Dosage: 120 MG, T (DAY) 1-7
     Route: 065
     Dates: start: 20170316, end: 20180221
  7. DEFERASIROX. [Suspect]
     Active Substance: DEFERASIROX
     Dosage: 180 MG, BID (7 MG/KG BODY WEIGHT/DAY= 2 TABLET 180MG)
     Route: 065
     Dates: start: 20171220, end: 20180122
  8. MOXIFLOXACIN. [Concomitant]
     Active Substance: MOXIFLOXACIN
     Indication: PRODUCT USED FOR UNKNOWN INDICATION
     Dosage: 1 DF, QD
     Route: 065
     Dates: start: 20170711, end: 20170718

REACTIONS (10)
  - Dyspnoea [Fatal]
  - Ear pain [Unknown]
  - Osteoporosis [Unknown]
  - Bronchitis [Recovered/Resolved]
  - Depression [Unknown]
  - Therapeutic response decreased [Unknown]
  - Oedema peripheral [Unknown]
  - Oropharyngeal pain [Unknown]
  - Back pain [Unknown]
  - Nasopharyngitis [Recovered/Resolved]

NARRATIVE: CASE EVENT DATE: 20170711
